FAERS Safety Report 20015606 (Version 1)
Quarter: 2021Q4

REPORT INFORMATION
  Report Type: Spontaneous
  Country: US (occurrence: None)
  Receive Date: 20211101
  Receipt Date: 20211101
  Transmission Date: 20220303
  Serious: No
  Sender: FDA-Public Use
  Company Number: None

PATIENT
  Age: 66 Year
  Sex: Male

DRUGS (2)
  1. BAMLANIVIMAB [Suspect]
     Active Substance: BAMLANIVIMAB
     Dosage: OTHER FREQUENCY : ONCE;?
     Route: 041
     Dates: start: 20211028, end: 20211028
  2. ETESEVIMAB [Suspect]
     Active Substance: ETESEVIMAB
     Dosage: OTHER FREQUENCY : ONCE;?
     Route: 041
     Dates: start: 20211028, end: 20211028

REACTIONS (4)
  - Chest pain [None]
  - Back pain [None]
  - Hyperhidrosis [None]
  - Hypertension [None]

NARRATIVE: CASE EVENT DATE: 20211028
